FAERS Safety Report 6512859-2 (Version None)
Quarter: 2009Q4

REPORT INFORMATION
  Report Type: 
  Country: None (occurrence: None)
  Receive Date: 20091217
  Receipt Date: 20091209
  Transmission Date: 20100525
  Serious: Yes (Life-Threatening)
  Sender: FDA-Public Use
  Company Number: 453275

PATIENT
  Age: 74 Year
  Sex: Male
  Weight: 74 kg

DRUGS (15)
  1. PRECEDEX [Suspect]
     Indication: AGITATION
     Dosage: SEE IMAGE
     Route: 042
  2. PRECEDEX [Suspect]
     Indication: SEDATIVE THERAPY
     Dosage: SEE IMAGE
     Route: 042
  3. ASPIRIN [Concomitant]
  4. METOPROLOL TARTRATE [Concomitant]
  5. (GLYCERYL TRINITRATE) [Concomitant]
  6. MOXIFLOXACIN HCL [Concomitant]
  7. ALBUTEROL [Concomitant]
  8. (IPRATROPIUM) [Concomitant]
  9. TERAZOSIN HCL [Concomitant]
  10. FUROSEMIDE [Concomitant]
  11. ENOXAPARIN SODIUM [Concomitant]
  12. PANTOPRAZOLE [Concomitant]
  13. MORPHINE [Concomitant]
  14. HALOPERIDOL [Concomitant]
  15. (OXYGEN) [Concomitant]

REACTIONS (4)
  - BRADYCARDIA [None]
  - ELECTROMECHANICAL DISSOCIATION [None]
  - HYPOTENSION [None]
  - HYPOXIA [None]
